FAERS Safety Report 9405500 (Version 1)
Quarter: 2013Q3

REPORT INFORMATION
  Report Type: Report from Study
  Country: BR (occurrence: BR)
  Receive Date: 20130717
  Receipt Date: 20130717
  Transmission Date: 20140515
  Serious: Yes (Hospitalization)
  Sender: FDA-Public Use
  Company Number: BR-ABBOTT-13P-020-1119502-00

PATIENT
  Age: 62 Year
  Sex: Female
  Weight: 70 kg

DRUGS (11)
  1. HUMIRA [Suspect]
     Indication: RHEUMATOID ARTHRITIS
     Route: 058
     Dates: start: 20120521, end: 20130424
  2. HUMIRA [Suspect]
     Route: 058
     Dates: start: 20120513
  3. PRELONE [Concomitant]
     Indication: ARTHRITIS
     Route: 048
  4. AZELEX [Concomitant]
     Indication: BLOOD PRESSURE ABNORMAL
     Route: 048
     Dates: end: 201302
  5. PURAN T4 [Concomitant]
     Indication: HYPERTHYROIDISM
     Route: 048
  6. PHENOBARBITAL [Concomitant]
     Indication: SYNCOPE
     Dosage: AT NIGHT
     Route: 048
     Dates: start: 1998
  7. ZETSIM [Concomitant]
     Indication: BLOOD CHOLESTEROL ABNORMAL
     Dosage: FORM STRENGTH: 10MG/ 20MG
     Route: 048
  8. ALPRAZOLAM [Concomitant]
     Indication: ANXIETY
     Route: 048
     Dates: end: 201306
  9. EBASTINE [Concomitant]
     Indication: RASH ERYTHEMATOUS
     Route: 048
  10. DEXAMETHASONE [Concomitant]
     Indication: RASH ERYTHEMATOUS
     Route: 061
  11. CALCIUM [Concomitant]
     Indication: PRODUCT USED FOR UNKNOWN INDICATION
     Route: 048

REACTIONS (1)
  - Blood sodium decreased [Recovered/Resolved]
